FAERS Safety Report 6319397-0 (Version None)
Quarter: 2009Q3

REPORT INFORMATION
  Report Type: 
  Country: None (occurrence: None)
  Receive Date: 20090822
  Receipt Date: 20080902
  Transmission Date: 20100115
  Serious: No
  Sender: FDA-Public Use
  Company Number: US-ABBOTT-08P-163-0472620-00

PATIENT
  Sex: Female

DRUGS (7)
  1. NIASPAN [Suspect]
     Indication: BLOOD CHOLESTEROL INCREASED
     Dosage: 500MG FOR 30 DAYS
     Dates: start: 20080721, end: 20080819
  2. NIASPAN [Suspect]
     Dosage: 1000 MG FOR 3 DAYS
     Dates: start: 20080820, end: 20080822
  3. NIASPAN [Suspect]
     Dates: start: 20080823
  4. LISINOPRIL [Concomitant]
     Indication: DRUG USE FOR UNKNOWN INDICATION
  5. GLUCOSAMINE [Concomitant]
     Indication: DRUG USE FOR UNKNOWN INDICATION
  6. SALMO SALAR OIL [Concomitant]
     Indication: DRUG USE FOR UNKNOWN INDICATION
  7. VIGRAN [Concomitant]
     Indication: DRUG USE FOR UNKNOWN INDICATION

REACTIONS (1)
  - FLUSHING [None]
